FAERS Safety Report 5834511-9 (Version None)
Quarter: 2008Q3

REPORT INFORMATION
  Report Type: 
  Country: None (occurrence: None)
  Receive Date: 20080805
  Receipt Date: 20080724
  Transmission Date: 20090109
  Serious: Yes (Other)
  Sender: FDA-Public Use
  Company Number: KR-PFIZER INC-2008062625

PATIENT
  Age: 48 Year
  Sex: Female

DRUGS (2)
  1. VFEND [Suspect]
     Indication: ENDOPHTHALMITIS
     Route: 047
  2. LEVOFLOXACIN [Concomitant]
     Route: 061

REACTIONS (1)
  - CATARACT [None]
